FAERS Safety Report 13978556 (Version 7)
Quarter: 2018Q2

REPORT INFORMATION
  Report Type: Spontaneous
  Country: CA (occurrence: CA)
  Receive Date: 20170915
  Receipt Date: 20180416
  Transmission Date: 20180711
  Serious: Yes (Hospitalization, Disabling, Other)
  Sender: FDA-Public Use
  Company Number: CA-PFIZER INC-2017021731

PATIENT
  Age: 80 Year
  Sex: Male

DRUGS (4)
  1. XELJANZ [Suspect]
     Active Substance: TOFACITINIB CITRATE
     Dosage: 5 MG, 2X/DAY
     Route: 048
     Dates: start: 201803
  2. XELJANZ [Suspect]
     Active Substance: TOFACITINIB CITRATE
     Indication: RHEUMATOID ARTHRITIS
     Dosage: 5 MG, 2X/DAY
     Route: 048
     Dates: start: 20160717
  3. XELJANZ [Suspect]
     Active Substance: TOFACITINIB CITRATE
     Dosage: 5 MG, 2X/DAY
     Route: 048
     Dates: start: 20170310, end: 20170814
  4. XELJANZ [Suspect]
     Active Substance: TOFACITINIB CITRATE
     Dosage: 5 MG, 2X/DAY
     Route: 048
     Dates: start: 20170903

REACTIONS (23)
  - Urticaria [Unknown]
  - Influenza [Not Recovered/Not Resolved]
  - Myalgia [Not Recovered/Not Resolved]
  - Rash pruritic [Recovered/Resolved]
  - Malaise [Recovered/Resolved]
  - Muscle spasms [Not Recovered/Not Resolved]
  - Epistaxis [Recovered/Resolved]
  - Back pain [Recovered/Resolved]
  - Headache [Not Recovered/Not Resolved]
  - Viral upper respiratory tract infection [Recovered/Resolved]
  - Bronchitis [Not Recovered/Not Resolved]
  - Night sweats [Recovered/Resolved]
  - Feeling abnormal [Unknown]
  - Rash [Unknown]
  - Oropharyngeal pain [Not Recovered/Not Resolved]
  - Rash generalised [Not Recovered/Not Resolved]
  - Dyspnoea [Not Recovered/Not Resolved]
  - Cough [Not Recovered/Not Resolved]
  - Muscular weakness [Unknown]
  - Cerebrovascular accident [Recovered/Resolved]
  - Pain [Unknown]
  - Herpes zoster [Unknown]
  - Pulmonary congestion [Not Recovered/Not Resolved]

NARRATIVE: CASE EVENT DATE: 201612
